FAERS Safety Report 17144888 (Version 1)
Quarter: 2019Q4

REPORT INFORMATION
  Report Type: Spontaneous
  Country: ES (occurrence: ES)
  Receive Date: 20191212
  Receipt Date: 20191212
  Transmission Date: 20200122
  Serious: Yes (Life-Threatening, Hospitalization)
  Sender: FDA-Public Use
  Company Number: ES-HONG KONG KING-FRIEND INDUSTRIAL COMPANY-2019NKF00034

PATIENT
  Age: 77 Year
  Sex: Male

DRUGS (1)
  1. HEPARIN SODIUM. [Suspect]
     Active Substance: HEPARIN SODIUM
     Route: 065

REACTIONS (8)
  - Ventricular fibrillation [Recovered/Resolved]
  - Acute coronary syndrome [Recovered/Resolved]
  - Cardiac arrest [Recovered/Resolved]
  - Heparin-induced thrombocytopenia [Recovered/Resolved]
  - Intracardiac thrombus [Recovered/Resolved]
  - Coronary artery embolism [Recovered/Resolved]
  - Cardiogenic shock [Recovered/Resolved]
  - Thrombosis in device [Unknown]
